FAERS Safety Report 6208567-8 (Version None)
Quarter: 2009Q2

REPORT INFORMATION
  Report Type: 
  Country: None (occurrence: None)
  Receive Date: 20090529
  Receipt Date: 20090519
  Transmission Date: 20091009
  Serious: Yes (Hospitalization, Other)
  Sender: FDA-Public Use
  Company Number: US-PFIZER INC-2009218413

PATIENT
  Sex: Male
  Weight: 72.562 kg

DRUGS (15)
  1. GEODON [Suspect]
     Indication: DEMENTIA ALZHEIMER'S TYPE
     Dosage: FREQUENCY: 2X/DAY, DAILY;
     Dates: start: 20090301
  2. REMICADE [Concomitant]
     Indication: ARTHRITIS
     Dosage: UNK
  3. FOLIC ACID [Concomitant]
     Dosage: UNK
  4. MOBIC [Concomitant]
     Dosage: UNK
  5. METHOTREXATE [Concomitant]
     Dosage: UNK
  6. NAMENDA [Concomitant]
     Dosage: UNK
  7. ARICEPT [Concomitant]
     Dosage: UNK
  8. ZOLOFT [Concomitant]
     Dosage: UNK
  9. ZOCOR [Concomitant]
     Dosage: UNK
  10. PLAVIX [Concomitant]
     Dosage: UNK
  11. PRILOSEC [Concomitant]
     Dosage: UNK
  12. ACETYLSALICYLIC ACID [Concomitant]
     Dosage: UNK
  13. DAILY VITAMINS [Concomitant]
     Dosage: UNK
  14. EXTRA STRENGTH TYLENOL [Concomitant]
     Dosage: UNK
  15. CALCIUM [Concomitant]
     Dosage: 500 MG, 3X/DAY

REACTIONS (5)
  - AGITATION [None]
  - CORONARY ARTERY OCCLUSION [None]
  - DRUG EFFECT DECREASED [None]
  - FEELING ABNORMAL [None]
  - IRRITABILITY [None]
